FAERS Safety Report 11523897 (Version 1)
Quarter: 2015Q3

REPORT INFORMATION
  Report Type: Spontaneous
  Country: IT (occurrence: IT)
  Receive Date: 20150918
  Receipt Date: 20150918
  Transmission Date: 20151125
  Serious: Yes (Other)
  Sender: FDA-Public Use
  Company Number: PHHY2015IT110071

PATIENT
  Age: 50 Year
  Sex: Male
  Weight: 79 kg

DRUGS (2)
  1. LANSOPRAZOLE HEXAL [Concomitant]
     Indication: PRODUCT USED FOR UNKNOWN INDICATION
     Dosage: 1 DF, UNK
     Route: 048
     Dates: start: 20000101, end: 20150831
  2. MIRTAZAPINE SANDOZ [Suspect]
     Active Substance: MIRTAZAPINE
     Indication: DEPRESSION
     Dosage: 1 DF, QD
     Route: 048
     Dates: start: 20150730, end: 20150813

REACTIONS (4)
  - Asthenia [Recovered/Resolved]
  - Paraesthesia [Recovered/Resolved]
  - Fall [Recovered/Resolved]
  - Drop attacks [Recovered/Resolved]

NARRATIVE: CASE EVENT DATE: 20150730
